FAERS Safety Report 9053748 (Version 1)
Quarter: 2013Q1

REPORT INFORMATION
  Report Type: Spontaneous
  Country: BR (occurrence: BR)
  Receive Date: 20130208
  Receipt Date: 20130208
  Transmission Date: 20140127
  Serious: Yes (Other)
  Sender: FDA-Public Use
  Company Number: PHHY2013BR011656

PATIENT
  Sex: Female
  Weight: 79 kg

DRUGS (6)
  1. ACLASTA [Suspect]
     Indication: OSTEOPOROSIS
     Dosage: 5 MG, UNK
     Route: 042
  2. PRELONE [Concomitant]
  3. ATENOLOL [Concomitant]
  4. LABIRIN [Concomitant]
  5. CLOPAM [Concomitant]
  6. GINKGO BILOBA [Concomitant]

REACTIONS (4)
  - Renal disorder [Unknown]
  - Blood urine present [Recovering/Resolving]
  - Pain [Recovering/Resolving]
  - Pyrexia [Recovering/Resolving]
